FAERS Safety Report 9879579 (Version 2)
Quarter: 2016Q1

REPORT INFORMATION
  Report Type: Spontaneous
  Country: US (occurrence: US)
  Receive Date: 20140206
  Receipt Date: 20160202
  Transmission Date: 20160526
  Serious: Yes (Other)
  Sender: FDA-Public Use
  Company Number: US-UCBSA-111075

PATIENT
  Age: 4 Year
  Sex: Female

DRUGS (12)
  1. ONFI [Suspect]
     Active Substance: CLOBAZAM
  2. TRILEPTAL [Suspect]
     Active Substance: OXCARBAZEPINE
  3. VALIUM [Suspect]
     Active Substance: DIAZEPAM
  4. LAMICTAL [Suspect]
     Active Substance: LAMOTRIGINE
  5. DEPAKOTE [Suspect]
     Active Substance: DIVALPROEX SODIUM
  6. CARBATROL [Suspect]
     Active Substance: CARBAMAZEPINE
  7. LEUKOVORIN [Suspect]
     Active Substance: LEUCOVORIN SODIUM
  8. TOPAMAX [Suspect]
     Active Substance: TOPIRAMATE
  9. PHENOBARBITAL. [Suspect]
     Active Substance: PHENOBARBITAL
  10. VIMPAT [Suspect]
     Active Substance: LACOSAMIDE
  11. KEPPRA [Suspect]
     Active Substance: LEVETIRACETAM
  12. B6 [Suspect]
     Active Substance: PYRIDOXINE HYDROCHLORIDE
     Dosage: HIGH DOSE

REACTIONS (7)
  - Hepatic failure [Unknown]
  - Drug ineffective [Unknown]
  - Stevens-Johnson syndrome [Unknown]
  - Adverse drug reaction [Unknown]
  - Skin discolouration [Unknown]
  - Anaemia [Unknown]
  - Seizure [Unknown]
